FAERS Safety Report 17550962 (Version 1)
Quarter: 2020Q1

REPORT INFORMATION
  Report Type: Other
  Country: FR (occurrence: FR)
  Receive Date: 20200317
  Receipt Date: 20200317
  Transmission Date: 20200409
  Serious: Yes (Other)
  Sender: FDA-Public Use
  Company Number: FR-DENTSPLY-2020SCDP000098

PATIENT
  Age: 54 Year
  Sex: Female
  Weight: 56 kg

DRUGS (3)
  1. HEXABRIX [Suspect]
     Active Substance: IOXAGLATE MEGLUMINE\IOXAGLATE SODIUM
     Indication: JOINT INJECTION
     Dosage: 10 MILLILITER, TOTAL
     Route: 014
     Dates: start: 201209, end: 201209
  2. XYLOCAINE WITH ADRENALINE (EPINEPHRINE) [Suspect]
     Active Substance: EPINEPHRINE BITARTRATE\LIDOCAINE HYDROCHLORIDE
     Indication: JOINT INJECTION
     Dosage: 1 DOSAGE FORM, TOTAL
     Route: 014
     Dates: start: 201209, end: 201209
  3. ALTIM [CORTIVAZOL] [Suspect]
     Active Substance: CORTIVAZOL
     Indication: JOINT INJECTION
     Dosage: 1 DOSAGE FORM, TOTAL
     Route: 014
     Dates: start: 201209, end: 201209

REACTIONS (2)
  - Angioedema [Recovered/Resolved]
  - Erythema [Recovered/Resolved]

NARRATIVE: CASE EVENT DATE: 201209
